FAERS Safety Report 25143835 (Version 1)
Quarter: 2025Q2

REPORT INFORMATION
  Report Type: Spontaneous
  Country: CH (occurrence: CH)
  Receive Date: 20250401
  Receipt Date: 20250401
  Transmission Date: 20250716
  Serious: Yes (Other)
  Sender: ALEXION PHARMACEUTICALS
  Company Number: None

PATIENT
  Age: 82 Year

DRUGS (7)
  1. DAPAGLIFLOZIN [Suspect]
     Active Substance: DAPAGLIFLOZIN
     Dosage: 5 MILLIGRAM, QD
  2. DIOVAN [Concomitant]
     Active Substance: VALSARTAN
  3. EDOXABAN TOSYLATE [Concomitant]
     Active Substance: EDOXABAN TOSYLATE
  4. NORVASC [Concomitant]
     Active Substance: AMLODIPINE BESYLATE
  5. PANTOPRAZOLE SODIUM [Concomitant]
     Active Substance: PANTOPRAZOLE SODIUM
  6. ATORVASTATIN [Concomitant]
     Active Substance: ATORVASTATIN
  7. EZETIMIBE [Concomitant]
     Active Substance: EZETIMIBE

REACTIONS (3)
  - Dermatitis exfoliative [Recovering/Resolving]
  - Rash papular [Recovering/Resolving]
  - Dry mouth [Recovering/Resolving]
